FAERS Safety Report 26013588 (Version 1)
Quarter: 2025Q4

REPORT INFORMATION
  Report Type: Spontaneous
  Country: US (occurrence: US)
  Receive Date: 20251107
  Receipt Date: 20251107
  Transmission Date: 20260117
  Serious: No
  Sender: JAZZ
  Company Number: US-JAZZ PHARMACEUTICALS-2024-US-023449

PATIENT
  Age: 12 Month
  Sex: Male

DRUGS (1)
  1. RYLAZE [Suspect]
     Active Substance: ASPARAGINASE ERWINIA CHRYSANTHEMI (RECOMBINANT)-RYWN
     Indication: Acute myeloid leukaemia

REACTIONS (2)
  - Hypoglycaemia [Recovered/Resolved]
  - Hyperinsulinism [Unknown]
